FAERS Safety Report 6844816-0 (Version None)
Quarter: 2010Q3

REPORT INFORMATION
  Report Type: 
  Country: None (occurrence: None)
  Receive Date: 20100715
  Receipt Date: 20100706
  Transmission Date: 20110219
  Serious: Yes (Other)
  Sender: FDA-Public Use
  Company Number: IT-PFIZER INC-2010083934

PATIENT
  Age: 73 Year
  Sex: Female

DRUGS (2)
  1. ZYVOX [Suspect]
     Indication: SEPSIS
     Dosage: UNK
     Dates: start: 20100604, end: 20100612
  2. MAXIPIME [Concomitant]
     Dosage: UNK

REACTIONS (1)
  - BRONCHOSPASM [None]
